FAERS Safety Report 17459679 (Version 2)
Quarter: 2021Q1

REPORT INFORMATION
  Report Type: Spontaneous
  Country: US (occurrence: US)
  Receive Date: 20200225
  Receipt Date: 20210223
  Transmission Date: 20210419
  Serious: No
  Sender: FDA-Public Use
  Company Number: US-ROCHE-2483395

PATIENT
  Age: 14 Year
  Sex: Male

DRUGS (1)
  1. NUTROPIN AQ [Suspect]
     Active Substance: SOMATROPIN
     Indication: PRODUCT USED FOR UNKNOWN INDICATION
     Dosage: MAY 2018?PRESENT
     Route: 058
     Dates: start: 20180501

REACTIONS (1)
  - Pain [Unknown]

NARRATIVE: CASE EVENT DATE: 20191121
